FAERS Safety Report 9029389 (Version 2)
Quarter: 2013Q1

REPORT INFORMATION
  Report Type: Spontaneous
  Country: US (occurrence: US)
  Receive Date: 20130125
  Receipt Date: 20130314
  Transmission Date: 20140127
  Serious: Yes (Life-Threatening, Hospitalization, Disabling, Other)
  Sender: FDA-Public Use
  Company Number: PHEH2013US001935

PATIENT
  Age: 53 Year
  Sex: Female
  Weight: 86.18 kg

DRUGS (6)
  1. EXFORGE [Suspect]
     Indication: HYPERTENSION
     Dosage: 1 DF (320 MG VALS/ 10 MG AMLO), DAILY
     Route: 048
     Dates: start: 20090810
  2. MAXZIDE [Concomitant]
     Indication: HYPERTENSION
     Dosage: 1 DF (37.5MG TRIAMTERENE/25MG HCT), DAILY
     Route: 048
     Dates: start: 20120525
  3. POTASSIUM CHLORIDE [Concomitant]
     Indication: HYPOKALAEMIA
     Dosage: 20 MEQ, DAILY
     Route: 048
     Dates: start: 20120525
  4. PRAVASTATIN [Concomitant]
     Indication: DYSLIPIDAEMIA
     Dosage: 20 MG, UNK
     Route: 048
     Dates: start: 20120525
  5. LISINOPRIL [Concomitant]
     Indication: HYPERTENSION
     Dosage: 40 UKN, UNK
     Route: 048
     Dates: start: 20090810, end: 20111221
  6. BYSTOLIC [Concomitant]
     Indication: HYPERTENSION
     Dosage: 10 MG, UNK
     Route: 048
     Dates: start: 20100325

REACTIONS (20)
  - Haemorrhagic stroke [Recovered/Resolved with Sequelae]
  - Brain stem haemorrhage [Unknown]
  - Hypokinesia [Unknown]
  - Dizziness [Unknown]
  - Aphasia [Unknown]
  - Balance disorder [Unknown]
  - Vision blurred [Unknown]
  - Gait disturbance [Unknown]
  - Headache [Unknown]
  - Speech disorder [Unknown]
  - Hemiparesis [Recovered/Resolved with Sequelae]
  - Dysarthria [Recovered/Resolved with Sequelae]
  - Ataxia [Recovered/Resolved with Sequelae]
  - Diplopia [Recovered/Resolved with Sequelae]
  - Visual acuity reduced [Unknown]
  - Cerebrovascular accident [Recovered/Resolved]
  - Fall [Unknown]
  - Blood pressure inadequately controlled [Unknown]
  - Asthenia [Unknown]
  - Anxiety [Unknown]
